FAERS Safety Report 12442702 (Version 1)
Quarter: 2016Q2

REPORT INFORMATION
  Report Type: Spontaneous
  Country: US (occurrence: None)
  Receive Date: 20160606
  Receipt Date: 20160606
  Transmission Date: 20160815
  Serious: Yes (Hospitalization)
  Sender: FDA-Public Use
  Company Number: None

PATIENT
  Age: 8 Year
  Sex: Male
  Weight: 50.8 kg

DRUGS (1)
  1. RIOMET [Suspect]
     Active Substance: METFORMIN HYDROCHLORIDE
     Indication: DIABETES MELLITUS
     Dosage: 5 TEASPOON(S) ONCE A DAY TAKEN BY MOUTH
     Route: 048

REACTIONS (7)
  - Headache [None]
  - Abdominal pain upper [None]
  - Vomiting [None]
  - Sluggishness [None]
  - Contusion [None]
  - Blood test abnormal [None]
  - Diarrhoea [None]

NARRATIVE: CASE EVENT DATE: 20160519
